FAERS Safety Report 13297473 (Version 2)
Quarter: 2017Q1

REPORT INFORMATION
  Report Type: Report from Study
  Country: CA (occurrence: CA)
  Receive Date: 20170306
  Receipt Date: 20170331
  Transmission Date: 20170428
  Serious: Yes (Other)
  Sender: FDA-Public Use
  Company Number: CA-TAKEDA-2017TUS004338

PATIENT
  Age: 38 Year
  Sex: Male

DRUGS (4)
  1. CALCIUM [Concomitant]
     Active Substance: CALCIUM
     Dosage: 500 MG, QD
  2. VEDOLIZUMAB [Suspect]
     Active Substance: VEDOLIZUMAB
     Indication: CROHN^S DISEASE
     Dosage: 300 MG, UNK
     Route: 042
     Dates: start: 20160822
  3. PREDNISONE. [Concomitant]
     Active Substance: PREDNISONE
     Dosage: 40 MG, QD
  4. VITAMIN D [Concomitant]
     Active Substance: CHOLECALCIFEROL
     Dosage: 1200 IU, QD

REACTIONS (2)
  - Crohn^s disease [Unknown]
  - Renal neoplasm [Not Recovered/Not Resolved]
